FAERS Safety Report 9626096 (Version 2)
Quarter: 2013Q4

REPORT INFORMATION
  Report Type: Spontaneous
  Country: US (occurrence: US)
  Receive Date: 20131016
  Receipt Date: 20131016
  Transmission Date: 20140711
  Serious: No
  Sender: FDA-Public Use
  Company Number: US-MYLANLABS-2013S1016647

PATIENT
  Sex: Male

DRUGS (4)
  1. VALSARTAN AND HYDROCHLOROTHIAZIDE TABLETS [Suspect]
     Indication: BLOOD PRESSURE INCREASED
     Route: 048
     Dates: start: 2012
  2. VITAMIN B12 [Concomitant]
     Route: 048
  3. BABY ASPIRIN [Concomitant]
     Route: 048
  4. NAPROXEN [Concomitant]
     Route: 048

REACTIONS (1)
  - Sensation of foreign body [Recovered/Resolved]
